FAERS Safety Report 5782453-X (Version None)
Quarter: 2008Q2

REPORT INFORMATION
  Report Type: 
  Country: None (occurrence: None)
  Receive Date: 20080623
  Receipt Date: 20080620
  Transmission Date: 20081010
  Serious: Yes (Hospitalization, Other)
  Sender: FDA-Public Use
  Company Number: PHHO2004ES14787

PATIENT
  Sex: Female
  Weight: 90 kg

DRUGS (6)
  1. ZOLEDRONIC ACID [Suspect]
     Dosage: 5MG
     Dates: start: 20030110
  2. OSTINE [Concomitant]
  3. IBUROFEN [Concomitant]
     Indication: PAIN
     Dosage: 600 MG, UNK
     Dates: start: 20020909
  4. XENICAL [Concomitant]
  5. CALCIUM ^SANDOZ^ [Concomitant]
  6. VITAMIN D [Concomitant]

REACTIONS (3)
  - ARTHRALGIA [None]
  - HIP ARTHROPLASTY [None]
  - OSTEONECROSIS [None]
